FAERS Safety Report 7893626 (Version 4)
Quarter: 2012Q4

REPORT INFORMATION
  Report Type: 
  Country: US (occurrence: US)
  Receive Date: 20110411
  Receipt Date: 20121226
  Transmission Date: 20130627
  Serious: Yes (Other)
  Sender: FDA-Public Use
  Company Number: US-ASTRAZENECA-2011SE18254

PATIENT
  Age: 46 Year
  Sex: Male
  Weight: 61.2 kg

DRUGS (6)
  1. SEROQUEL [Suspect]
     Indication: BIPOLAR DISORDER
     Route: 048
     Dates: start: 2003
  2. SEROQUEL [Suspect]
     Indication: MANIA
     Route: 048
     Dates: start: 2003
  3. SEROQUEL [Suspect]
     Indication: BIPOLAR DISORDER
     Route: 048
  4. SEROQUEL [Suspect]
     Indication: MANIA
     Route: 048
  5. SEROQUEL [Suspect]
     Indication: BIPOLAR DISORDER
     Route: 048
     Dates: start: 2005
  6. SEROQUEL [Suspect]
     Indication: MANIA
     Route: 048
     Dates: start: 2005

REACTIONS (14)
  - Hypoaesthesia [Not Recovered/Not Resolved]
  - Feeling cold [Not Recovered/Not Resolved]
  - Paraesthesia [Unknown]
  - Burning sensation [Unknown]
  - Brain scan abnormal [Unknown]
  - Hyperaesthesia [Not Recovered/Not Resolved]
  - Pain in extremity [Unknown]
  - Sensation of blood flow [Unknown]
  - Adverse event [Unknown]
  - Emotional distress [Unknown]
  - Pain in extremity [Unknown]
  - Vision blurred [Unknown]
  - Adverse drug reaction [Unknown]
  - Muscle disorder [Unknown]
